FAERS Safety Report 25134527 (Version 1)
Quarter: 2025Q1

REPORT INFORMATION
  Report Type: Spontaneous
  Country: US (occurrence: None)
  Receive Date: 20250327
  Receipt Date: 20250327
  Transmission Date: 20250409
  Serious: No
  Sender: FDA-CTU
  Company Number: None

PATIENT
  Age: 34 Year
  Sex: Male
  Weight: 78.8 kg

DRUGS (1)
  1. MYFORTIC [Suspect]
     Active Substance: MYCOPHENOLATE SODIUM
     Indication: Renal transplant

REACTIONS (1)
  - Oedema peripheral [None]

NARRATIVE: CASE EVENT DATE: 20250228
